FAERS Safety Report 23422076 (Version 1)
Quarter: 2024Q1

REPORT INFORMATION
  Report Type: Spontaneous
  Country: US (occurrence: None)
  Receive Date: 20240118
  Receipt Date: 20240118
  Transmission Date: 20240409
  Serious: Yes (Hospitalization)
  Sender: FDA-Public Use
  Company Number: None

PATIENT
  Sex: Female

DRUGS (4)
  1. TADALAFIL [Suspect]
     Active Substance: TADALAFIL
     Indication: Pulmonary arterial hypertension
     Dosage: 40MG ONCE DAILY PO?
     Route: 048
     Dates: start: 202307
  2. DOFETILIDE [Concomitant]
  3. OPSUMIT [Concomitant]
     Active Substance: MACITENTAN
  4. REMODULIN [Concomitant]
     Active Substance: TREPROSTINIL

REACTIONS (2)
  - Dyspnoea [None]
  - Condition aggravated [None]
